FAERS Safety Report 12791900 (Version 2)
Quarter: 2017Q2

REPORT INFORMATION
  Report Type: Spontaneous
  Country: US (occurrence: US)
  Receive Date: 20160929
  Receipt Date: 20170406
  Transmission Date: 20170830
  Serious: Yes (Death, Other)
  Sender: FDA-Public Use
  Company Number: US-PFIZER INC-2016447783

PATIENT

DRUGS (1)
  1. KONAKION MM [Suspect]
     Active Substance: PHYTONADIONE
     Dosage: UNK (INJECTABLE)
     Route: 042

REACTIONS (3)
  - Product dosage form issue [None]
  - Adverse drug reaction [None]
  - Death [Fatal]
